FAERS Safety Report 21559932 (Version 2)
Quarter: 2022Q4

REPORT INFORMATION
  Report Type: Spontaneous
  Country: UY (occurrence: UY)
  Receive Date: 20221107
  Receipt Date: 20221201
  Transmission Date: 20230113
  Serious: No
  Sender: FDA-Public Use
  Company Number: UY-PFIZER INC-PV202200085139

PATIENT
  Age: 12 Year
  Sex: Female

DRUGS (1)
  1. GENOTROPIN [Suspect]
     Active Substance: SOMATROPIN
     Indication: Turner^s syndrome
     Dosage: 1 TO 1.4 MG, 7 TIMES PER WEEK
     Dates: start: 20130601

REACTIONS (3)
  - Device breakage [Unknown]
  - Device mechanical issue [Unknown]
  - Device information output issue [Unknown]
